FAERS Safety Report 24242930 (Version 1)
Quarter: 2024Q3

REPORT INFORMATION
  Report Type: Spontaneous
  Country: FR (occurrence: FR)
  Receive Date: 20240823
  Receipt Date: 20240823
  Transmission Date: 20241017
  Serious: Yes (Other)
  Sender: RANBAXY
  Company Number: FR-AFSSAPS-AN2024000729

PATIENT
  Age: 15 Year
  Sex: Male

DRUGS (3)
  1. IBUPROFEN [Suspect]
     Active Substance: IBUPROFEN
     Indication: Toothache
     Dosage: 2 DOSAGE FORM, IN TOTAL
     Route: 048
     Dates: start: 20230214, end: 20230215
  2. PREDNISOLONE [Suspect]
     Active Substance: PREDNISOLONE
     Indication: Antibiotic prophylaxis
     Dosage: 60 MILLIGRAM, DAILY
     Route: 048
     Dates: start: 20230214, end: 20230216
  3. AMOXICILLIN [Suspect]
     Active Substance: AMOXICILLIN
     Indication: Antibiotic prophylaxis
     Dosage: UNK
     Route: 048
     Dates: start: 20230213, end: 20230220

REACTIONS (3)
  - Jaundice [Recovered/Resolved]
  - Hepatitis [Recovered/Resolved]
  - Eosinophilia [Recovered/Resolved]

NARRATIVE: CASE EVENT DATE: 20230219
